FAERS Safety Report 5390869-9 (Version None)
Quarter: 2007Q3

REPORT INFORMATION
  Report Type: 
  Country: None (occurrence: None)
  Receive Date: 20070716
  Receipt Date: 20070703
  Transmission Date: 20080115
  Serious: Yes (Hospitalization)
  Sender: FDA-Public Use
  Company Number: GXKR2007PL05794

PATIENT
  Age: 56 Year
  Sex: Male
  Weight: 73 kg

DRUGS (1)
  1. AMOKSIKLAV (NGX)(AMOXICILLIN, CLAVULANATE) TABLET, 625MG [Suspect]
     Indication: URETHRITIS
     Dosage: 625 MG, TID, ORAL
     Route: 048
     Dates: start: 20070604, end: 20070608

REACTIONS (2)
  - DRUG ERUPTION [None]
  - PRURITUS [None]
